FAERS Safety Report 6661392-6 (Version None)
Quarter: 2010Q1

REPORT INFORMATION
  Report Type: 
  Country: None (occurrence: None)
  Receive Date: 20100331
  Receipt Date: 20100319
  Transmission Date: 20100710
  Serious: Yes (Other)
  Sender: FDA-Public Use
  Company Number: JP-BAYER-201020252GPV

PATIENT

DRUGS (4)
  1. ASPIRIN [Suspect]
     Indication: ARTERIAL THROMBOSIS
  2. TICLOPIDINE HCL [Suspect]
     Indication: ARTERIAL THROMBOSIS
  3. HEPARIN [Suspect]
     Indication: ARTERIAL THROMBOSIS
  4. SCH530348 OR PLACEBO [Suspect]
     Indication: ARTERIAL THROMBOSIS

REACTIONS (2)
  - HAEMORRHAGE [None]
  - MYOCARDIAL INFARCTION [None]
